FAERS Safety Report 21354527 (Version 2)
Quarter: 2022Q4

REPORT INFORMATION
  Report Type: Report from Study
  Country: FR (occurrence: None)
  Receive Date: 20220920
  Receipt Date: 20221024
  Transmission Date: 20230113
  Serious: Yes (Death)
  Sender: FDA-Public Use
  Company Number: 2022A316992

PATIENT
  Age: 910 Month
  Sex: Female
  Weight: 90 kg

DRUGS (2)
  1. EVUSHELD [Suspect]
     Active Substance: CILGAVIMAB\TIXAGEVIMAB
     Indication: COVID-19 prophylaxis
     Dosage: (TIXAGEVIMAB 150 MG/CILGAVIMAB 150 MG) ONCE/SINGLE ADMINISTRATION
     Route: 030
     Dates: start: 20220215, end: 20220215
  2. COVID-19-VACCINE [Concomitant]
     Dates: end: 20211015

REACTIONS (3)
  - Respiratory distress [Fatal]
  - Altered state of consciousness [Fatal]
  - Pneumonitis aspiration [Fatal]

NARRATIVE: CASE EVENT DATE: 20220711
